FAERS Safety Report 14403474 (Version 5)
Quarter: 2018Q3

REPORT INFORMATION
  Report Type: Spontaneous
  Country: US (occurrence: US)
  Receive Date: 20180117
  Receipt Date: 20180824
  Transmission Date: 20181010
  Serious: Yes (Other)
  Sender: FDA-Public Use
  Company Number: US-PFIZER INC-2018011331

PATIENT
  Age: 66 Year
  Sex: Female

DRUGS (35)
  1. ZOFRAN [Suspect]
     Active Substance: ONDANSETRON HYDROCHLORIDE
     Indication: NAUSEA
     Dosage: 2 DOSES WITHIN HALF AN HOUR OF EACH OTHER
  2. ZOFRAN [Suspect]
     Active Substance: ONDANSETRON HYDROCHLORIDE
     Dosage: UNK (2 DOSES)
     Dates: start: 201712
  3. ALDACTONE [Concomitant]
     Active Substance: SPIRONOLACTONE
     Indication: BLOOD PRESSURE MEASUREMENT
     Dosage: 25 MG, 1X/DAY
     Dates: start: 20110913
  4. FLEXERIL [Concomitant]
     Active Substance: CYCLOBENZAPRINE HYDROCHLORIDE
     Indication: BACK PAIN
     Dosage: 10 MG, AS NEEDED
  5. MELATONIN [Concomitant]
     Active Substance: MELATONIN
     Indication: SLEEP DISORDER
     Dosage: 5 MG, 1X/DAY (PM)
     Dates: start: 20160622
  6. TIKOSYN [Suspect]
     Active Substance: DOFETILIDE
     Dosage: 0.5 MG, 2X/DAY
  7. TIKOSYN [Suspect]
     Active Substance: DOFETILIDE
     Dosage: 250 UG, 2X/DAY
     Route: 048
     Dates: start: 20171101
  8. KLOR?CON [Concomitant]
     Active Substance: POTASSIUM CHLORIDE
     Indication: BLOOD POTASSIUM DECREASED
     Dosage: 20 MEQ, 1X/DAY (AM)
     Dates: start: 20141231
  9. SYNTHROID [Concomitant]
     Active Substance: LEVOTHYROXINE SODIUM
     Indication: THYROID DISORDER
     Dosage: 100 UG, 1X/DAY (1 PER DAY + 8 PER WEEK,IN NIGHT)
     Dates: start: 20040923
  10. NEXIUM [Concomitant]
     Active Substance: ESOMEPRAZOLE MAGNESIUM
     Indication: ABDOMINAL DISCOMFORT
     Dosage: 40 MG, 1X/DAY (PM)
     Dates: start: 20160712
  11. CALCIUM CITRATE 630+ D3 500 [Concomitant]
     Dosage: UNK,2X/DAY(AM, PM)
  12. VITAMIN D3 [Concomitant]
     Active Substance: CHOLECALCIFEROL
     Dosage: UNK, 1X/DAY (SPREAD OUT)
     Dates: start: 20111019
  13. LASIX [Concomitant]
     Active Substance: FUROSEMIDE
     Indication: FLUID RETENTION
     Dosage: 20 MG, 1X/DAY(AM)
     Dates: start: 20141230
  14. BACLOFEN. [Concomitant]
     Active Substance: BACLOFEN
     Indication: BACK PAIN
     Dosage: 10 MG, AS NEEDED
  15. XARELTO [Concomitant]
     Active Substance: RIVAROXABAN
     Indication: ARRHYTHMIA
     Dosage: 20 MG, 1X/DAY (SUPPER)
     Dates: start: 20130712
  16. COZAAR [Concomitant]
     Active Substance: LOSARTAN POTASSIUM
     Indication: BLOOD PRESSURE MEASUREMENT
     Dosage: 100 MG, 1X/DAY (AM)
     Dates: start: 20141226
  17. QVAR [Concomitant]
     Active Substance: BECLOMETHASONE DIPROPIONATE
     Indication: PULMONARY HYPERTENSION
     Dosage: 80 UG, 2X/DAY (1 SPRAY EA. TIME PER DAY,AM,PM)
     Dates: start: 20160831
  18. NORCO [Concomitant]
     Active Substance: ACETAMINOPHEN\HYDROCODONE BITARTRATE
     Indication: BACK PAIN
     Dosage: AS NEEDED (EVERY 12 HOURS,HYDROCODONE BITARTRATE:5MG, PARACETAMOL:325MG)
  19. BIOTIN [Concomitant]
     Active Substance: BIOTIN
     Dosage: 5000 UG, 1X/DAY (AM)
     Dates: start: 20130725
  20. TIKOSYN [Suspect]
     Active Substance: DOFETILIDE
     Indication: ATRIAL FIBRILLATION
     Dosage: 0.500 MG, UNK
  21. NEURONTIN [Concomitant]
     Active Substance: GABAPENTIN
     Indication: NEURALGIA
     Dosage: 300 MG, 3X/DAY (AM, SUPPER, PM)
     Dates: start: 20160621
  22. NEXIUM [Concomitant]
     Active Substance: ESOMEPRAZOLE MAGNESIUM
     Dosage: 20 MG, 1X/DAY (AM)
     Dates: start: 20160717
  23. FAMIVIR [Concomitant]
     Active Substance: FAMCICLOVIR
     Indication: ORAL HERPES
     Dosage: 500 MG, AS NEEDED
  24. WELLBUTRIN XL [Concomitant]
     Active Substance: BUPROPION HYDROCHLORIDE
     Indication: DEPRESSION
     Dosage: 300 MG, 1X/DAY(AM)
     Dates: start: 20160712
  25. NORCO [Concomitant]
     Active Substance: ACETAMINOPHEN\HYDROCODONE BITARTRATE
     Indication: PAIN IN EXTREMITY
  26. VITAMIN C [Concomitant]
     Active Substance: ASCORBIC ACID
     Dosage: 1000 MG, 1X/DAY
  27. REVATIO [Suspect]
     Active Substance: SILDENAFIL CITRATE
     Indication: PULMONARY ARTERIAL HYPERTENSION
     Dosage: 20 MG, 2X/DAY (AM, PM)
     Dates: start: 20101214
  28. REVATIO [Suspect]
     Active Substance: SILDENAFIL CITRATE
     Indication: PULMONARY HYPERTENSION
  29. ALLEGRA [Concomitant]
     Active Substance: FEXOFENADINE HYDROCHLORIDE
     Indication: SINUSITIS
     Dosage: 180 MG, 1X/DAY(SUPPER)
     Dates: start: 20151020
  30. MAGNESIUM [Concomitant]
     Active Substance: MAGNESIUM
     Indication: ARRHYTHMIA
     Dosage: 650 MG, 1X/DAY(SUPPER)
     Dates: start: 20140206
  31. TYLENOL [Concomitant]
     Active Substance: ACETAMINOPHEN
     Dosage: 500 MG, AS NEEDED
  32. TIKOSYN [Suspect]
     Active Substance: DOFETILIDE
     Indication: ARRHYTHMIA
     Dosage: 0.5 MG, 2X/DAY
     Dates: start: 20131217
  33. TIKOSYN [Suspect]
     Active Substance: DOFETILIDE
     Dosage: 0.250 MG, UNK
  34. CARVEDILOL. [Concomitant]
     Active Substance: CARVEDILOL
     Indication: ARRHYTHMIA
     Dosage: 6.25 MG, 2X/DAY (AM, PM)
     Dates: start: 20140905
  35. NASACORT ALLERGY 24HR [Concomitant]
     Active Substance: TRIAMCINOLONE ACETONIDE
     Indication: SINUSITIS
     Dosage: UNK, 2X/DAY (2 SPRAYS)
     Dates: start: 20150903

REACTIONS (5)
  - Electrocardiogram QT prolonged [Recovered/Resolved]
  - Drug prescribing error [Unknown]
  - Bronchitis [Unknown]
  - Pneumonia [Unknown]
  - Malaise [Unknown]
